FAERS Safety Report 4387781-0 (Version None)
Quarter: 2004Q2

REPORT INFORMATION
  Report Type: 
  Country: None (occurrence: None)
  Receive Date: 20040630
  Receipt Date: 20040323
  Transmission Date: 20050107
  Serious: Yes (Other)
  Sender: FDA-Public Use
  Company Number: 364913

PATIENT
  Age: 65 Year
  Sex: Female
  Weight: 32.1 kg

DRUGS (10)
  1. COREG [Suspect]
     Indication: DRUG USE FOR UNKNOWN INDICATION
     Route: 048
  2. LISINOPRIL [Suspect]
  3. PRINIVIL [Suspect]
     Dosage: 40MG PER DAY
  4. LASIX [Suspect]
     Dosage: 20MG PER DAY
  5. LANOXIN [Concomitant]
     Dosage: .25MG PER DAY
  6. PREMARIN [Concomitant]
     Dosage: .625MG PER DAY
  7. FLONASE [Concomitant]
  8. BENADRYL [Concomitant]
  9. ASPIRIN [Concomitant]
  10. VITAMIN E [Concomitant]

REACTIONS (11)
  - ANAEMIA [None]
  - CARDIAC FAILURE CONGESTIVE [None]
  - GAMMOPATHY [None]
  - LEUKOPENIA [None]
  - MARROW HYPERPLASIA [None]
  - MYELODYSPLASTIC SYNDROME [None]
  - PALPITATIONS [None]
  - PLASMA CELL DISORDER [None]
  - PLASMA CELLS DECREASED [None]
  - RED BLOOD CELL SEDIMENTATION RATE INCREASED [None]
  - THROMBOCYTOPENIA [None]
